FAERS Safety Report 12578504 (Version 1)
Quarter: 2016Q3

REPORT INFORMATION
  Report Type: Spontaneous
  Country: US (occurrence: US)
  Receive Date: 20160721
  Receipt Date: 20160721
  Transmission Date: 20161109
  Serious: No
  Sender: FDA-Public Use
  Company Number: US-BAYER-2016-134980

PATIENT
  Age: 16 Year
  Sex: Male
  Weight: 54.42 kg

DRUGS (3)
  1. MIRALAX [Suspect]
     Active Substance: POLYETHYLENE GLYCOL 3350
     Indication: COLONOSCOPY
     Dosage: UNK
     Route: 048
     Dates: start: 2013
  2. VITAMIN D [Concomitant]
     Active Substance: CHOLECALCIFEROL
  3. REMICADE [Concomitant]
     Active Substance: INFLIXIMAB

REACTIONS (5)
  - Diarrhoea [None]
  - Off label use [None]
  - Off label use [None]
  - Wrong technique in product usage process [None]
  - Vomiting [None]

NARRATIVE: CASE EVENT DATE: 201306
